FAERS Safety Report 9717215 (Version 1)
Quarter: 2013Q4

REPORT INFORMATION
  Report Type: Spontaneous
  Country: US (occurrence: None)
  Receive Date: 20131125
  Receipt Date: 20131125
  Transmission Date: 20140711
  Serious: Yes (Hospitalization)
  Sender: FDA-Public Use
  Company Number: 2010-US-000001

PATIENT
  Age: 49 Year
  Sex: Female

DRUGS (4)
  1. PRIALT [Suspect]
     Dosage: UNK, UG, QH, INTRATHECAL
  2. CLONIDINE [Suspect]
     Dosage: UNK, UG, QH, INTRATHECAL
  3. BUPIVACAINE HYDROCHLORIDE [Suspect]
     Dosage: UNK, MG, QH, INTRATHECAL
  4. BACLOFEN [Suspect]
     Dosage: UNK, UG, QH, INTRATHECAL

REACTIONS (15)
  - General physical condition abnormal [None]
  - Nutritional condition abnormal [None]
  - Wound [None]
  - Impaired healing [None]
  - Malaise [None]
  - Nausea [None]
  - Confusional state [None]
  - Asthenia [None]
  - Lethargy [None]
  - Abdominal pain upper [None]
  - Drug withdrawal syndrome [None]
  - Drug ineffective [None]
  - Back pain [None]
  - Device alarm issue [None]
  - Device failure [None]
